FAERS Safety Report 24894918 (Version 2)
Quarter: 2025Q2

REPORT INFORMATION
  Report Type: Spontaneous
  Country: DE (occurrence: DE)
  Receive Date: 20250128
  Receipt Date: 20250610
  Transmission Date: 20250717
  Serious: Yes (Life-Threatening, Hospitalization, Other)
  Sender: PFIZER
  Company Number: DE-DCGMA-25204581

PATIENT
  Age: 81 Year
  Sex: Male
  Weight: 100 kg

DRUGS (2)
  1. AMPICILLIN SODIUM\SULBACTAM SODIUM [Suspect]
     Active Substance: AMPICILLIN SODIUM\SULBACTAM SODIUM
     Indication: Pneumonia
     Dosage: DAILY DOSE: 3 G EVERY 1 DAY
     Route: 042
     Dates: start: 20250106, end: 20250107
  2. AZITHROMYCIN [Suspect]
     Active Substance: AZITHROMYCIN
     Indication: Pneumonia
     Route: 048
     Dates: start: 20250107, end: 20250109

REACTIONS (4)
  - Acute hepatic failure [Not Recovered/Not Resolved]
  - Lactic acidosis [Not Recovered/Not Resolved]
  - Delirium [Not Recovered/Not Resolved]
  - Hepatic encephalopathy [Not Recovered/Not Resolved]

NARRATIVE: CASE EVENT DATE: 20250107
